FAERS Safety Report 9677552 (Version 1)
Quarter: 2013Q4

REPORT INFORMATION
  Report Type: Spontaneous
  Country: US (occurrence: US)
  Receive Date: 20131108
  Receipt Date: 20131108
  Transmission Date: 20140711
  Serious: No
  Sender: FDA-Public Use
  Company Number: US-009507513-1310USA007699

PATIENT
  Age: 45 Year
  Sex: Female

DRUGS (2)
  1. ASMANEX TWISTHALER [Suspect]
     Indication: ASTHMA
     Dosage: 220 MCG/ONE PUFF ONCE DAILY
     Route: 055
     Dates: start: 200510
  2. SINGULAIR [Concomitant]
     Route: 048

REACTIONS (2)
  - Tremor [Not Recovered/Not Resolved]
  - Product quality issue [Unknown]
